FAERS Safety Report 9764365 (Version 1)
Quarter: 2013Q4

REPORT INFORMATION
  Report Type: Spontaneous
  Country: DE (occurrence: DE)
  Receive Date: 20131217
  Receipt Date: 20131217
  Transmission Date: 20140711
  Serious: Yes (Hospitalization)
  Sender: FDA-Public Use
  Company Number: DE-BIOGENIDEC-2013BI119552

PATIENT
  Age: 54 Year
  Sex: Female
  Weight: 88 kg

DRUGS (1)
  1. AVONEX [Suspect]
     Indication: MULTIPLE SCLEROSIS
     Route: 030
     Dates: start: 20121025

REACTIONS (4)
  - Cerebrovascular accident [Recovered/Resolved]
  - Visual impairment [Recovered/Resolved]
  - Nuclear magnetic resonance imaging abnormal [Recovered/Resolved]
  - Headache [Recovered/Resolved]
